FAERS Safety Report 17653562 (Version 2)
Quarter: 2020Q2

REPORT INFORMATION
  Report Type: Report from Study
  Country: GB (occurrence: GB)
  Receive Date: 20200409
  Receipt Date: 20200512
  Transmission Date: 20200713
  Serious: Yes (Hospitalization)
  Sender: FDA-Public Use
  Company Number: NVSC2020GB074306

PATIENT
  Sex: Male

DRUGS (3)
  1. SANDOSTATIN LAR DEPOT [Suspect]
     Active Substance: OCTREOTIDE ACETATE
     Indication: NEUROENDOCRINE TUMOUR
     Dosage: 30 MG,(EVERY 28 DAYS)
     Route: 030
     Dates: start: 20170607
  2. OXYCODONE [Concomitant]
     Active Substance: OXYCODONE
     Indication: PAIN
     Dosage: 15 MG, BID
     Route: 065
     Dates: start: 20200416
  3. MORPHINE [Concomitant]
     Active Substance: MORPHINE
     Indication: PAIN
     Dosage: UNK
     Route: 065

REACTIONS (2)
  - Urinary tract infection [Unknown]
  - Renal disorder [Unknown]

NARRATIVE: CASE EVENT DATE: 20200217
